FAERS Safety Report 7014430-5 (Version None)
Quarter: 2010Q3

REPORT INFORMATION
  Report Type: 
  Country: None (occurrence: None)
  Receive Date: 20100927
  Receipt Date: 20100917
  Transmission Date: 20110219
  Serious: Yes (Hospitalization)
  Sender: FDA-Public Use
  Company Number: PHHY2010FR62319

PATIENT
  Sex: Male

DRUGS (3)
  1. EXJADE [Suspect]
     Route: 048
  2. SIMVASTATIN [Concomitant]
     Dosage: UNK
     Route: 048
  3. DIOSMINE [Concomitant]
     Dosage: UNK
     Route: 048

REACTIONS (2)
  - SKIN REACTION [None]
  - TOXIC SKIN ERUPTION [None]
